FAERS Safety Report 7318664-1 (Version None)
Quarter: 2011Q1

REPORT INFORMATION
  Report Type: 
  Country: None (occurrence: None)
  Receive Date: 20110228
  Receipt Date: 20110214
  Transmission Date: 20110831
  Serious: Yes (Hospitalization)
  Sender: FDA-Public Use
  Company Number: FR-RANBAXY-2011RR-41664

PATIENT
  Age: 34 Year
  Sex: Male

DRUGS (8)
  1. PRAVASTATIN [Suspect]
     Indication: CORONARY ARTERY DISEASE
     Dosage: 20 MG, UNK
  2. COLCHICINE [Suspect]
     Dosage: 1 MG, BID
  3. HYDROCORTISONE [Suspect]
  4. EVEROLIMUS [Suspect]
  5. CICLOSPORIN [Suspect]
     Dosage: 170 MG, BID
  6. AZITHROMYCIN [Suspect]
     Indication: BRONCHIOLITIS
     Dosage: 250 MG, UNK
  7. COLCHICINE [Suspect]
     Indication: GOUT
     Dosage: 1 MG, TID
  8. COLCHICINE [Suspect]
     Dosage: 1 MG, UNK

REACTIONS (2)
  - DRUG INTERACTION [None]
  - RHABDOMYOLYSIS [None]
